FAERS Safety Report 7431170-9 (Version None)
Quarter: 2011Q2

REPORT INFORMATION
  Report Type: 
  Country: None (occurrence: None)
  Receive Date: 20110421
  Receipt Date: 20110405
  Transmission Date: 20111010
  Serious: Yes (Hospitalization)
  Sender: FDA-Public Use
  Company Number: FR-ELI_LILLY_AND_COMPANY-FR201011006850

PATIENT
  Age: 65 Year
  Sex: Male

DRUGS (7)
  1. NITROGLYCERIN [Concomitant]
  2. ASPEGIC 325 [Concomitant]
  3. POLARAMINE [Concomitant]
  4. LOVENOX [Concomitant]
  5. EFFIENT [Suspect]
     Route: 048
     Dates: start: 20100823, end: 20100825
  6. PLAVIX [Concomitant]
     Dosage: 75 MG, UNK
     Route: 048
     Dates: start: 20100822, end: 20100823
  7. DIPROSONE [Concomitant]

REACTIONS (3)
  - DERMATITIS EXFOLIATIVE [None]
  - PRURITUS [None]
  - CROSS SENSITIVITY REACTION [None]
